FAERS Safety Report 8252856-2 (Version None)
Quarter: 2012Q2

REPORT INFORMATION
  Report Type: 
  Country: None (occurrence: None)
  Receive Date: 20120402
  Receipt Date: 20110710
  Transmission Date: 20120825
  Serious: No
  Sender: FDA-Public Use
  Company Number: US-ABBOTT-11P-163-0838478-00

PATIENT
  Sex: Male

DRUGS (3)
  1. ANDROGEL [Suspect]
  2. VIAGRA [Concomitant]
     Indication: ERECTILE DYSFUNCTION
     Dosage: AS NEEDED
  3. ANDROGEL [Suspect]
     Indication: BLOOD TESTOSTERONE DECREASED
     Dates: start: 20110701

REACTIONS (6)
  - EJACULATION FAILURE [None]
  - ERECTILE DYSFUNCTION [None]
  - DYSPNOEA [None]
  - RENAL DISORDER [None]
  - FATIGUE [None]
  - DEPRESSION [None]
